FAERS Safety Report 23518586 (Version 2)
Quarter: 2024Q1

REPORT INFORMATION
  Report Type: Report from Study
  Country: FR (occurrence: None)
  Receive Date: 20240213
  Receipt Date: 20240322
  Transmission Date: 20240410
  Serious: Yes (Other)
  Sender: FDA-Public Use
  Company Number: 2024A017570

PATIENT
  Sex: Female
  Weight: 70 kg

DRUGS (1)
  1. IMFINZI [Suspect]
     Active Substance: DURVALUMAB
     Indication: HER2 positive biliary tract cancer
     Dosage: IMFINZI AT THE DOSAGE OF 1500 MG EVERY THREE WEEKS
     Route: 042
     Dates: start: 20230317

REACTIONS (1)
  - Toxicity to various agents [Unknown]
